FAERS Safety Report 9688112 (Version 1)
Quarter: 2013Q4

REPORT INFORMATION
  Report Type: Spontaneous
  Country: US (occurrence: None)
  Receive Date: 20131113
  Receipt Date: 20131113
  Transmission Date: 20140711
  Serious: Yes (Other)
  Sender: FDA-Public Use
  Company Number: None

PATIENT
  Age: 25 Year
  Sex: Female
  Weight: 55.79 kg

DRUGS (1)
  1. LO-SO PREP [Suspect]
     Dates: start: 20131111, end: 20131112

REACTIONS (5)
  - Feeling hot [None]
  - Dizziness [None]
  - Syncope [None]
  - Loss of consciousness [None]
  - Nausea [None]
